FAERS Safety Report 20910165 (Version 3)
Quarter: 2022Q4

REPORT INFORMATION
  Report Type: Report from Study
  Country: US (occurrence: US)
  Receive Date: 20220603
  Receipt Date: 20221102
  Transmission Date: 20230113
  Serious: No
  Sender: FDA-Public Use
  Company Number: US-NOVARTISTESTPH-NVSC2022US127191

PATIENT
  Age: 70 Year
  Sex: Female

DRUGS (2)
  1. COSENTYX [Suspect]
     Active Substance: SECUKINUMAB
     Indication: Psoriasis
     Dosage: 300 MG, QW
     Route: 058
     Dates: start: 20220511
  2. COSENTYX [Suspect]
     Active Substance: SECUKINUMAB
     Indication: Psoriatic arthropathy
     Dosage: 300 MG, QMO
     Route: 058

REACTIONS (7)
  - Dizziness [Recovering/Resolving]
  - Injection site reaction [Unknown]
  - Hypogeusia [Unknown]
  - Vomiting [Unknown]
  - Pain in extremity [Unknown]
  - Paraesthesia [Unknown]
  - Dry skin [Unknown]

NARRATIVE: CASE EVENT DATE: 20220511
